FAERS Safety Report 23424784 (Version 1)
Quarter: 2024Q1

REPORT INFORMATION
  Report Type: Spontaneous
  Country: US (occurrence: US)
  Receive Date: 20240121
  Receipt Date: 20240121
  Transmission Date: 20240410
  Serious: No
  Sender: FDA-Public Use
  Company Number: US-BoehringerIngelheim-2024-BI-003475

PATIENT
  Age: 62 Year
  Sex: Male

DRUGS (1)
  1. SYNJARDY XR [Suspect]
     Active Substance: EMPAGLIFLOZIN\METFORMIN HYDROCHLORIDE
     Indication: Type 2 diabetes mellitus
     Dosage: 5MG/1000MG BID

REACTIONS (2)
  - Abdominal discomfort [Recovered/Resolved]
  - Glycosylated haemoglobin [Not Recovered/Not Resolved]
